FAERS Safety Report 10494859 (Version 1)
Quarter: 2014Q3

REPORT INFORMATION
  Report Type: Spontaneous
  Country: US (occurrence: None)
  Receive Date: 20140815
  Receipt Date: 20140815
  Transmission Date: 20150326
  Serious: Yes (Other)
  Sender: FDA-Public Use
  Company Number: ADR-2014-00209

PATIENT
  Sex: Male

DRUGS (4)
  1. BACLOFEN INTRATHECAL [Suspect]
     Active Substance: BACLOFEN
     Indication: PAIN
  2. HYDROMORPHONE [Suspect]
     Active Substance: HYDROMORPHONE
     Indication: PAIN
  3. FENTANYL. [Suspect]
     Active Substance: FENTANYL
  4. BUPIVACAINE [Suspect]
     Active Substance: BUPIVACAINE

REACTIONS (6)
  - Drug withdrawal syndrome [None]
  - No therapeutic response [None]
  - Pain in extremity [None]
  - Underdose [None]
  - Implant site mass [None]
  - Back pain [None]
